FAERS Safety Report 8810640 (Version 2)
Quarter: 2012Q4

REPORT INFORMATION
  Report Type: 
  Country: US (occurrence: US)
  Receive Date: 20120927
  Receipt Date: 20121019
  Transmission Date: 20130627
  Serious: No
  Sender: FDA-Public Use
  Company Number: US-009507513-1209USA008227

PATIENT
  Sex: Female

DRUGS (4)
  1. PEGINTRON [Suspect]
     Indication: HEPATITIS C
     Dosage: UNK
     Dates: start: 20120916
  2. REBETOL [Suspect]
     Indication: HEPATITIS C
     Dosage: UNK
     Route: 048
     Dates: start: 20120916
  3. TELAPREVIR [Concomitant]
     Indication: HEPATITIS C
     Dosage: UNK
     Route: 048
     Dates: start: 20120916
  4. VALIUM [Concomitant]

REACTIONS (17)
  - Confusional state [Unknown]
  - Inappropriate schedule of drug administration [Unknown]
  - Amnesia [Unknown]
  - Chills [Unknown]
  - Tremor [Unknown]
  - Retching [Unknown]
  - Crying [Unknown]
  - Pain [Unknown]
  - Vomiting [Unknown]
  - Feeling abnormal [Unknown]
  - Dyspepsia [Unknown]
  - Decreased appetite [Unknown]
  - Hyperhidrosis [Unknown]
  - Abdominal pain upper [Unknown]
  - Hypermetropia [Unknown]
  - Daydreaming [Unknown]
  - Injury associated with device [Unknown]
